FAERS Safety Report 9286772 (Version 1)
Quarter: 2013Q2

REPORT INFORMATION
  Report Type: Spontaneous
  Country: AU (occurrence: AU)
  Receive Date: 20130513
  Receipt Date: 20130513
  Transmission Date: 20140414
  Serious: Yes (Other)
  Sender: FDA-Public Use
  Company Number: AU-B.I. PHARMACEUTICALS,INC./RIDGEFIELD-2013-BI-12470GD

PATIENT
  Age: 58 Year
  Sex: Female

DRUGS (12)
  1. CLONIDINE [Suspect]
     Dosage: 45 MCG
     Route: 042
  2. IBUPROFEN [Suspect]
  3. MIDAZOLAM [Concomitant]
     Indication: INDUCTION OF ANAESTHESIA
  4. FENTANYL [Concomitant]
     Indication: INDUCTION OF ANAESTHESIA
  5. PROPOFOL [Concomitant]
     Indication: INDUCTION OF ANAESTHESIA
  6. SEVOFLURANE [Concomitant]
     Indication: MAINTENANCE OF ANAESTHESIA
  7. CEPHAZOLIN [Concomitant]
  8. PARACETAMOL [Concomitant]
  9. PARECOXIB [Concomitant]
  10. DEXAMETHASONE [Concomitant]
  11. TROPISETRON [Concomitant]
  12. ROPIVICAINE [Concomitant]
     Indication: NERVE BLOCK
     Dosage: 30 ML  OF 0.375 PERCENT

REACTIONS (7)
  - Circulatory collapse [Unknown]
  - Hypotension [Unknown]
  - Blood pressure decreased [Unknown]
  - Ventricular hyperkinesia [Unknown]
  - Pulmonary hypertension [Unknown]
  - Respiratory tract oedema [Unknown]
  - Obstructive airways disorder [Unknown]
